FAERS Safety Report 9274692 (Version 10)
Quarter: 2014Q2

REPORT INFORMATION
  Report Type: Report from Study
  Country: FR (occurrence: FR)
  Receive Date: 20130507
  Receipt Date: 20140422
  Transmission Date: 20141212
  Serious: Yes (Other)
  Sender: FDA-Public Use
  Company Number: FR-ROCHE-1219853

PATIENT
  Age: 84 Year
  Sex: Male
  Weight: 59 kg

DRUGS (9)
  1. VISMODEGIB [Suspect]
     Indication: BASAL CELL CARCINOMA
     Dosage: DATE OF LAST DOSE PRIOR TO SAE: 24/APR/2013.
     Route: 048
     Dates: start: 20130206, end: 20130424
  2. VISMODEGIB [Suspect]
     Route: 048
     Dates: start: 20130525
  3. MAGNE B6 (FRANCE) [Concomitant]
     Indication: MUSCLE SPASMS
     Route: 048
     Dates: start: 20130213
  4. DUOPLAVIN [Concomitant]
     Indication: ANXIETY
     Route: 048
     Dates: start: 20130323
  5. TAHOR [Concomitant]
     Indication: CARDIOVASCULAR EVENT PROPHYLAXIS
     Route: 065
  6. INIPOMP [Concomitant]
     Indication: PROPHYLAXIS
     Route: 065
     Dates: start: 20130406
  7. COVERSYL [Concomitant]
     Indication: CARDIOVASCULAR EVENT PROPHYLAXIS
     Route: 048
  8. LASILIX [Concomitant]
     Indication: CARDIOVASCULAR EVENT PROPHYLAXIS
     Route: 065
  9. CARDENSIEL [Concomitant]
     Indication: CARDIOVASCULAR EVENT PROPHYLAXIS
     Route: 065

REACTIONS (1)
  - Pancreatitis [Recovered/Resolved]
